FAERS Safety Report 4655819-9 (Version None)
Quarter: 2005Q2

REPORT INFORMATION
  Report Type: 
  Country: None (occurrence: None)
  Receive Date: 20050506
  Receipt Date: 20050506
  Transmission Date: 20051028
  Serious: Yes (Hospitalization)
  Sender: FDA-Public Use
  Company Number: None

PATIENT
  Age: 47 Year
  Sex: Female
  Weight: 52.6173 kg

DRUGS (3)
  1. GEMCITABINE [Suspect]
     Indication: OVARIAN CANCER
     Dosage: 1000 MG/M2   D1 + 8
     Dates: start: 20050405
  2. GEMCITABINE [Suspect]
     Indication: OVARIAN CANCER
     Dosage: 1000 MG/M2   D1 + 8
     Dates: start: 20050412
  3. CARBOPLATIN [Suspect]
     Indication: OVARIAN CANCER
     Dosage: AUC 5  D1
     Dates: start: 20050405

REACTIONS (5)
  - HAEMOGLOBIN DECREASED [None]
  - NEUTROPHIL COUNT DECREASED [None]
  - PLATELET COUNT DECREASED [None]
  - PYREXIA [None]
  - WHITE BLOOD CELL COUNT DECREASED [None]
